FAERS Safety Report 9684008 (Version 7)
Quarter: 2014Q3

REPORT INFORMATION
  Report Type: Report from Study
  Country: VE (occurrence: VE)
  Receive Date: 20131112
  Receipt Date: 20140901
  Transmission Date: 20150326
  Serious: Yes (Other)
  Sender: FDA-Public Use
  Company Number: PHHY2011VE32664

PATIENT
  Age: 76 Year
  Sex: Female

DRUGS (15)
  1. FORADIL [Suspect]
     Active Substance: FORMOTEROL FUMARATE
     Indication: ASTHMA
     Dosage: 12 UG, EVERY 8 HOURS
     Route: 055
     Dates: start: 201109
  2. MIFLONIDE [Suspect]
     Active Substance: BUDESONIDE
     Dosage: DOSE REDUCED
  3. SPIRIVA [Concomitant]
     Active Substance: TIOTROPIUM BROMIDE MONOHYDRATE
     Indication: ASTHMA
     Dosage: 18 UG, DAILY
     Route: 055
     Dates: start: 2010
  4. FORADIL [Suspect]
     Active Substance: FORMOTEROL FUMARATE
     Dosage: DOSE REDUCED
  5. MIFLONIDE [Suspect]
     Active Substance: BUDESONIDE
     Indication: ASTHMA
     Dosage: 400 UG, DAILY (EVERY 8 HOURS)
     Route: 055
     Dates: start: 201109
  6. ATORVASTATIN [Concomitant]
     Active Substance: ATORVASTATIN
     Indication: BLOOD CHOLESTEROL INCREASED
     Dosage: UNK DAILY
     Route: 048
  7. EUTHYROX [Concomitant]
     Active Substance: LEVOTHYROXINE SODIUM
     Indication: THYROID DISORDER
     Dosage: 50 MG, UNK
     Route: 048
  8. XOLAIR [Suspect]
     Active Substance: OMALIZUMAB
     Indication: CHRONIC OBSTRUCTIVE PULMONARY DISEASE
     Dosage: 300 MG, QMO
     Route: 058
     Dates: start: 201203, end: 201401
  9. MIFLONIDE [Suspect]
     Active Substance: BUDESONIDE
     Dosage: 200 MG, 4 INHALATION DAILY
     Route: 048
     Dates: start: 201203
  10. FORADIL [Suspect]
     Active Substance: FORMOTEROL FUMARATE
     Dosage: 4 INHALATION DAILY
     Route: 048
     Dates: start: 201203
  11. XOLAIR [Suspect]
     Active Substance: OMALIZUMAB
     Dosage: 150 MG, QMO
     Route: 058
     Dates: start: 201401
  12. ONBREZ [Suspect]
     Active Substance: INDACATEROL
     Indication: ASTHMA
     Dosage: 800 MG, DAILY
     Route: 055
     Dates: start: 201103, end: 201109
  13. ALDACTAZIDA [Concomitant]
     Indication: TENSION
     Dosage: UNK
     Route: 048
  14. XOLAIR [Suspect]
     Active Substance: OMALIZUMAB
     Indication: ASTHMA
     Dosage: 300 MG, QMO
     Route: 058
     Dates: start: 20110211, end: 20111211
  15. BERODUAL [Concomitant]
     Active Substance: FENOTEROL HYDROBROMIDE\IPRATROPIUM BROMIDE
     Indication: ASTHMA
     Dosage: UKN, PRN
     Route: 055
     Dates: start: 201109

REACTIONS (10)
  - Asthmatic crisis [Recovering/Resolving]
  - Dyspnoea [Unknown]
  - Chest discomfort [Not Recovered/Not Resolved]
  - Drug ineffective [Unknown]
  - Choking [Unknown]
  - Influenza [Not Recovered/Not Resolved]
  - Oxygen consumption increased [Unknown]
  - Cough [Not Recovered/Not Resolved]
  - Asthma [Not Recovered/Not Resolved]
  - Malaise [Not Recovered/Not Resolved]

NARRATIVE: CASE EVENT DATE: 2012
